FAERS Safety Report 23097690 (Version 1)
Quarter: 2023Q4

REPORT INFORMATION
  Report Type: Spontaneous
  Country: US (occurrence: None)
  Receive Date: 20231019
  Receipt Date: 20231019
  Transmission Date: 20240110
  Serious: Yes (Hospitalization)
  Sender: FDA-Public Use
  Company Number: None

PATIENT
  Age: 80 Year
  Sex: Male
  Weight: 90 kg

DRUGS (1)
  1. WARFARIN SODIUM [Suspect]
     Active Substance: WARFARIN SODIUM
     Dates: start: 20171229

REACTIONS (5)
  - Urinary tract infection [None]
  - Haematuria [None]
  - International normalised ratio increased [None]
  - Therapy interrupted [None]
  - Drug interaction [None]

NARRATIVE: CASE EVENT DATE: 20230203
